FAERS Safety Report 8559806-X (Version None)
Quarter: 2012Q3

REPORT INFORMATION
  Report Type: 
  Country: None (occurrence: None)
  Receive Date: 20120802
  Receipt Date: 20120727
  Transmission Date: 20120928
  Serious: Yes (Hospitalization)
  Sender: FDA-Public Use
  Company Number: DE-PFIZER INC-2012182270

PATIENT
  Age: 69 Year
  Sex: Female
  Weight: 68 kg

DRUGS (1)
  1. GABAPENTIN [Suspect]
     Dosage: 300 MG, UNK
     Route: 048
     Dates: start: 20110516, end: 20120105

REACTIONS (1)
  - TRANSAMINASES INCREASED [None]
